FAERS Safety Report 6467086-4 (Version None)
Quarter: 2009Q4

REPORT INFORMATION
  Report Type: 
  Country: None (occurrence: None)
  Receive Date: 20091127
  Receipt Date: 20091117
  Transmission Date: 20100525
  Serious: Yes (Hospitalization)
  Sender: FDA-Public Use
  Company Number: ADR51302009

PATIENT
  Age: 37 Year
  Sex: Male

DRUGS (6)
  1. CIPROFLOXACIN [Suspect]
     Indication: NEUTROPENIC SEPSIS
     Dates: start: 20080101, end: 20080101
  2. CLINDAMYCIN [Concomitant]
  3. GENTAMICIN [Concomitant]
  4. METRONIDAZOLE [Concomitant]
  5. TAZOCIN [Concomitant]
  6. PREDNISOLONE [Concomitant]

REACTIONS (3)
  - DRUG RASH WITH EOSINOPHILIA AND SYSTEMIC SYMPTOMS [None]
  - HEPATIC FAILURE [None]
  - RENAL FAILURE [None]
